FAERS Safety Report 21837153 (Version 6)
Quarter: 2023Q2

REPORT INFORMATION
  Report Type: Report from Study
  Country: CA (occurrence: CA)
  Receive Date: 20230109
  Receipt Date: 20230512
  Transmission Date: 20230721
  Serious: Yes (Hospitalization, Other)
  Sender: FDA-Public Use
  Company Number: CA-GLAXOSMITHKLINE-CA2023AMR001562

PATIENT

DRUGS (2)
  1. MEPOLIZUMAB [Suspect]
     Active Substance: MEPOLIZUMAB
     Indication: Asthma
     Dosage: 100 MG, Q4W
     Route: 058
     Dates: start: 20191107
  2. MEPOLIZUMAB [Suspect]
     Active Substance: MEPOLIZUMAB
     Dosage: 100 MG, Q4W
     Route: 058
     Dates: start: 20191107

REACTIONS (11)
  - Pneumonia [Not Recovered/Not Resolved]
  - Hospitalisation [Unknown]
  - COVID-19 [Unknown]
  - Near death experience [Unknown]
  - Sinusitis [Unknown]
  - Illness [Unknown]
  - Inappropriate schedule of product administration [Unknown]
  - Product dose omission issue [Unknown]
  - Alopecia [Unknown]
  - Emotional disorder [Unknown]
  - Lung cyst [Not Recovered/Not Resolved]

NARRATIVE: CASE EVENT DATE: 20230103
